FAERS Safety Report 5683445-1 (Version None)
Quarter: 2008Q1

REPORT INFORMATION
  Report Type: 
  Country: None (occurrence: None)
  Receive Date: 20080326
  Receipt Date: 20080310
  Transmission Date: 20080703
  Serious: Yes (Death)
  Sender: FDA-Public Use
  Company Number: 1-15879301

PATIENT
  Age: 59 Year
  Sex: Male
  Weight: 127.0072 kg

DRUGS (11)
  1. FENTANYL [Suspect]
     Indication: PAIN
     Dosage: 25 MCG/HR EVERY 72 HRS, TRANSDERMAL
     Route: 062
     Dates: start: 20080214, end: 20080216
  2. HUMALOG [Concomitant]
  3. FOLTX (FOLACIN, CYANOCOBALAMIN AND PYRIDOXINE) [Concomitant]
  4. ALTACE [Concomitant]
  5. ACTOS [Concomitant]
  6. NORVASC [Concomitant]
  7. COREG [Concomitant]
  8. SUBLINGUAL NITROGLYCERIN TABLETS [Concomitant]
  9. ACIPHEX [Concomitant]
  10. LIPITOR [Concomitant]
  11. TYLENOL ARTHRITIS PAIN (ACETAMINOPHEN) [Concomitant]

REACTIONS (4)
  - DYSPNOEA [None]
  - FALL [None]
  - OVERDOSE [None]
  - SUDDEN DEATH [None]
